FAERS Safety Report 5622705-7 (Version None)
Quarter: 2008Q1

REPORT INFORMATION
  Report Type: 
  Country: None (occurrence: None)
  Receive Date: 20080208
  Receipt Date: 20080208
  Transmission Date: 20080703
  Serious: No
  Sender: FDA-Public Use
  Company Number: None

PATIENT
  Age: 76 Year
  Sex: Male

DRUGS (1)
  1. AMLODIPINE [Suspect]
     Indication: HYPERTENSION
     Dosage: 10MG  AM  PO
     Route: 048
     Dates: start: 20070705, end: 20071015

REACTIONS (2)
  - GASTRITIS [None]
  - GASTROOESOPHAGEAL REFLUX DISEASE [None]
